FAERS Safety Report 18344035 (Version 1)
Quarter: 2020Q4

REPORT INFORMATION
  Report Type: Spontaneous
  Country: US (occurrence: US)
  Receive Date: 20201002
  Receipt Date: 20201002
  Transmission Date: 20210114
  Serious: Yes (Hospitalization)
  Sender: FDA-Public Use
  Company Number: None

PATIENT
  Age: 4 Year
  Sex: Male

DRUGS (1)
  1. NEUPOGEN [Suspect]
     Active Substance: FILGRASTIM
     Dosage: ?          OTHER STRENGTH:300 UG/ML;?
     Route: 058
     Dates: start: 20200717, end: 20201001

REACTIONS (2)
  - Blood count abnormal [None]
  - Pyrexia [None]

NARRATIVE: CASE EVENT DATE: 20200815
